FAERS Safety Report 6308192-4 (Version None)
Quarter: 2009Q3

REPORT INFORMATION
  Report Type: 
  Country: None (occurrence: None)
  Receive Date: 20090813
  Receipt Date: 20090803
  Transmission Date: 20100115
  Serious: Yes (Other)
  Sender: FDA-Public Use
  Company Number: ZA-PFIZER INC-2009250404

PATIENT
  Age: 39 Year

DRUGS (2)
  1. CAMPTOSAR [Suspect]
     Indication: GLIOBLASTOMA
     Dosage: UNK
  2. AVASTIN [Suspect]
     Indication: GLIOBLASTOMA
     Dosage: UNK

REACTIONS (1)
  - URETHRITIS [None]
